FAERS Safety Report 12552920 (Version 2)
Quarter: 2016Q4

REPORT INFORMATION
  Report Type: Report from Study
  Country: JP (occurrence: JP)
  Receive Date: 20160713
  Receipt Date: 20161125
  Transmission Date: 20170207
  Serious: Yes (Hospitalization, Other)
  Sender: FDA-Public Use
  Company Number: JP-IPSEN BIOPHARMACEUTICALS, INC.-2016-05957

PATIENT
  Age: 0 Year
  Sex: Female
  Weight: .76 kg

DRUGS (14)
  1. FERROMIA [Concomitant]
     Active Substance: FERROUS CITRATE
     Dosage: NOT APPLICABLE
     Route: 063
  2. ALLEGRA [Concomitant]
     Active Substance: FEXOFENADINE HYDROCHLORIDE
     Dosage: NOT APPLICABLE
     Route: 064
  3. SENNOSIDE [Concomitant]
     Active Substance: SENNOSIDES
     Dosage: NOT APPLICABLE
     Route: 064
  4. FERROMIA [Concomitant]
     Active Substance: FERROUS CITRATE
     Dosage: NOT APPLICABLE
     Route: 064
  5. CINAL [Concomitant]
     Active Substance: ASCORBIC ACID\CALCIUM PANTOTHENATE
     Dosage: NOT APPLICABLE
     Route: 064
  6. LOXONIN [Concomitant]
     Active Substance: LOXOPROFEN SODIUM
     Dosage: NOT APPLICABLE
     Route: 063
  7. SOMATULINE AUTOGEL [Suspect]
     Active Substance: LANREOTIDE ACETATE
     Dosage: NOT APPLICABLE
     Route: 063
  8. CONSTAN [Concomitant]
     Active Substance: ALPRAZOLAM
     Dosage: NOT APPLICABLE
     Route: 064
  9. SOMATULINE AUTOGEL [Suspect]
     Active Substance: LANREOTIDE ACETATE
     Indication: ACROMEGALY
     Dosage: NOT APPLICABLE
     Route: 064
  10. SENNOSIDE [Concomitant]
     Active Substance: SENNOSIDES
     Dosage: NOT APPLICABLE
     Route: 063
  11. ALLEGRA [Concomitant]
     Active Substance: FEXOFENADINE HYDROCHLORIDE
     Dosage: NOT APPLICABLE
     Route: 063
  12. CONSTAN [Concomitant]
     Active Substance: ALPRAZOLAM
     Dosage: NOT APPLICABLE
     Route: 063
  13. LOXONIN [Concomitant]
     Active Substance: LOXOPROFEN SODIUM
     Dosage: NOT APPLICABLE
     Route: 064
  14. CINAL [Concomitant]
     Active Substance: ASCORBIC ACID\CALCIUM PANTOTHENATE
     Dosage: NOT APPLICABLE
     Route: 063

REACTIONS (7)
  - Foetal growth restriction [Unknown]
  - Exposure during breast feeding [Unknown]
  - Low birth weight baby [Unknown]
  - Right ventricular failure [Unknown]
  - Premature baby [Unknown]
  - Foetal exposure during pregnancy [Unknown]
  - Umbilical cord abnormality [Unknown]

NARRATIVE: CASE EVENT DATE: 201401
